FAERS Safety Report 9972959 (Version 1)
Quarter: 2014Q1

REPORT INFORMATION
  Report Type: Spontaneous
  Country: FR (occurrence: FR)
  Receive Date: 20140306
  Receipt Date: 20140306
  Transmission Date: 20141002
  Serious: Yes (Hospitalization)
  Sender: FDA-Public Use
  Company Number: FR-PFIZER INC-2014060641

PATIENT
  Age: 87 Year
  Sex: Female

DRUGS (5)
  1. AMIODARONE HCL [Suspect]
     Indication: ATRIAL FIBRILLATION
     Dosage: 1 DF, DAILY
     Route: 048
     Dates: end: 20120124
  2. LYSANXIA [Concomitant]
     Dosage: UNK
  3. RABEPRAZOLE [Concomitant]
     Dosage: UNK
  4. DISCOTRINE [Concomitant]
     Dosage: UNK
  5. KARDEGIC [Concomitant]
     Dosage: UNK

REACTIONS (7)
  - Acute respiratory distress syndrome [Unknown]
  - Depressed level of consciousness [Unknown]
  - Lobar pneumonia [Unknown]
  - Bronchospasm [Unknown]
  - Cardiac failure acute [Unknown]
  - Bradycardia [Recovering/Resolving]
  - Pulmonary fibrosis [Unknown]
